FAERS Safety Report 23512146 (Version 2)
Quarter: 2024Q1

REPORT INFORMATION
  Report Type: Spontaneous
  Country: DE (occurrence: DE)
  Receive Date: 20240212
  Receipt Date: 20240302
  Transmission Date: 20240409
  Serious: Yes (Hospitalization, Other)
  Sender: FDA-Public Use
  Company Number: DE-SANDOZ-SDZ2024DE012902

PATIENT
  Age: 3 Year
  Sex: Male
  Weight: 11 kg

DRUGS (5)
  1. OMNITROPE [Suspect]
     Active Substance: SOMATROPIN
     Indication: Prader-Willi syndrome
     Dosage: 0.25 MG
     Route: 058
     Dates: start: 20230712, end: 20240206
  2. OMNITROPE [Suspect]
     Active Substance: SOMATROPIN
     Dosage: 0.25 MG
     Route: 065
     Dates: start: 20230713
  3. OMNITROPE [Suspect]
     Active Substance: SOMATROPIN
     Dosage: UNK
     Route: 065
     Dates: start: 20231025
  4. OMNITROPE [Suspect]
     Active Substance: SOMATROPIN
     Dosage: UNK
     Route: 065
     Dates: start: 202205, end: 20221024
  5. LEVETIRACETAM [Concomitant]
     Active Substance: LEVETIRACETAM
     Indication: Product used for unknown indication
     Dosage: UNK
     Route: 065
     Dates: start: 20230515

REACTIONS (5)
  - Loss of consciousness [Recovered/Resolved]
  - Adenoidal hypertrophy [Recovered/Resolved]
  - Hypoacusis [Recovered/Resolved]
  - Otitis media [Recovered/Resolved]
  - Mental status changes [Recovered/Resolved]

NARRATIVE: CASE EVENT DATE: 20230801
